FAERS Safety Report 5041802-0 (Version None)
Quarter: 2006Q2

REPORT INFORMATION
  Report Type: 
  Country: None (occurrence: None)
  Receive Date: 20060630
  Receipt Date: 20060622
  Transmission Date: 20061013
  Serious: Yes (Hospitalization)
  Sender: FDA-Public Use
  Company Number: 2006_000017

PATIENT
  Age: 61 Year
  Sex: Female
  Weight: 83.4 kg

DRUGS (13)
  1. DEPOCYT [Suspect]
     Indication: MENINGEAL DISORDER
     Dosage: 50 MG;QOW;INTH
     Route: 037
     Dates: start: 20060512, end: 20060530
  2. TEMODAR [Suspect]
     Indication: MENINGEAL DISORDER
     Dosage: 210 MG;QW;PO
     Route: 048
     Dates: start: 20060512, end: 20060518
  3. DEXAMETHASONE TAB [Concomitant]
  4. ZOCOR [Concomitant]
  5. AMBIEN [Concomitant]
  6. XANAX [Concomitant]
  7. ACIPHEX [Concomitant]
  8. NEURONTIN [Concomitant]
  9. TRAMADOL HCL [Concomitant]
  10. REPAGLINIDE [Concomitant]
  11. INSULIN GLARGINE [Concomitant]
  12. MAGNESIUM HYDROXIDE TAB [Concomitant]
  13. LISINOPRIL [Concomitant]

REACTIONS (11)
  - ARACHNOIDITIS [None]
  - CONFUSIONAL STATE [None]
  - DEHYDRATION [None]
  - DIZZINESS [None]
  - FATIGUE [None]
  - HYPERGLYCAEMIA [None]
  - HYPERTENSION [None]
  - INTRACRANIAL PRESSURE INCREASED [None]
  - MEMORY IMPAIRMENT [None]
  - TREMOR [None]
  - VISION BLURRED [None]
